FAERS Safety Report 7441747-2 (Version None)
Quarter: 2011Q2

REPORT INFORMATION
  Report Type: 
  Country: None (occurrence: None)
  Receive Date: 20110420
  Receipt Date: 20110408
  Transmission Date: 20111010
  Serious: Yes (Hospitalization, Other)
  Sender: FDA-Public Use
  Company Number: CL-307-2011

PATIENT
  Age: 71 Year
  Sex: Female

DRUGS (4)
  1. SOTALOL HCL [Concomitant]
  2. WARFARIN [Concomitant]
  3. AMIODARONE HCL [Suspect]
     Indication: ATRIAL FIBRILLATION
     Dosage: 4MG/KG OVER 30 MIN IV
     Route: 042
  4. RAMIPRIL [Concomitant]

REACTIONS (1)
  - BACK PAIN [None]
